FAERS Safety Report 17679376 (Version 1)
Quarter: 2020Q2

REPORT INFORMATION
  Report Type: Spontaneous
  Country: US (occurrence: US)
  Receive Date: 20200416
  Receipt Date: 20200416
  Transmission Date: 20200714
  Serious: Yes (Other)
  Sender: FDA-Public Use
  Company Number: None

PATIENT
  Age: 52 Year
  Sex: Male
  Weight: 94.5 kg

DRUGS (3)
  1. UNKNOWN [Concomitant]
     Active Substance: UNSPECIFIED INGREDIENT
  2. AUSTEDO [Suspect]
     Active Substance: DEUTETRABENAZINE
     Indication: TARDIVE DYSKINESIA
     Route: 048
     Dates: start: 20200404, end: 20200410
  3. AUSTEDO [Suspect]
     Active Substance: DEUTETRABENAZINE
     Indication: TARDIVE DYSKINESIA
     Route: 048
     Dates: start: 20200411, end: 20200414

REACTIONS (2)
  - Hypoaesthesia [None]
  - Depressed mood [None]

NARRATIVE: CASE EVENT DATE: 20200414
